FAERS Safety Report 4498492-5 (Version None)
Quarter: 2004Q4

REPORT INFORMATION
  Report Type: 
  Country: None (occurrence: None)
  Receive Date: 20041105
  Receipt Date: 20041021
  Transmission Date: 20050328
  Serious: Yes (Hospitalization)
  Sender: FDA-Public Use
  Company Number: F01200402284

PATIENT
  Age: 59 Year
  Sex: Female

DRUGS (4)
  1. (OXALIPLATIN) - SOLUTION - 85 MG/M2 [Suspect]
     Indication: COLORECTAL CANCER
     Dosage: 85 MG/M2 Q2W
     Route: 042
     Dates: start: 20040525, end: 20040525
  2. FLUOROURACIL [Suspect]
     Dosage: 400 MG/M2 BOLUS THEN 2400 MG/M2 AS 46 HOURS INFUSION Q2W
     Route: 042
     Dates: start: 20040525, end: 20040527
  3. LEUCOVORIN SOLUTION 350 MG [Suspect]
     Dosage: 350 MG Q2W
     Route: 042
     Dates: start: 20040525, end: 20040525
  4. AVASTIN [Suspect]
     Dosage: 5 MG/KG OVER 30-90 MINUTES IV INFUSION ON DAY 1, Q2W
     Route: 042
     Dates: start: 20040525, end: 20040525

REACTIONS (4)
  - DIARRHOEA [None]
  - INTESTINAL PERFORATION [None]
  - NAUSEA [None]
  - VOMITING [None]
